FAERS Safety Report 9967427 (Version 1)
Quarter: 2014Q1

REPORT INFORMATION
  Report Type: Spontaneous
  Country: US (occurrence: US)
  Receive Date: 20140305
  Receipt Date: 20140305
  Transmission Date: 20141002
  Serious: No
  Sender: FDA-Public Use
  Company Number: US-ABBVIE-13P-163-1138474-00

PATIENT
  Age: 33 Year
  Sex: Male
  Weight: 97.61 kg

DRUGS (2)
  1. HUMIRA [Suspect]
     Indication: PSORIASIS
     Route: 058
     Dates: start: 201302
  2. RISPERDAL [Concomitant]
     Indication: SCHIZOPHRENIA

REACTIONS (1)
  - Rhinorrhoea [Not Recovered/Not Resolved]
